FAERS Safety Report 26154616 (Version 1)
Quarter: 2025Q4

REPORT INFORMATION
  Report Type: Spontaneous
  Country: CA (occurrence: CA)
  Receive Date: 20251215
  Receipt Date: 20251215
  Transmission Date: 20260117
  Serious: Yes (Disabling)
  Sender: APOTEX
  Company Number: CA-PGRTD-001156838

PATIENT
  Age: 75 Year
  Sex: Female

DRUGS (5)
  1. DOXYCYCLINE HYCLATE [Suspect]
     Active Substance: DOXYCYCLINE HYCLATE
     Indication: Cellulitis
     Dosage: 2 EVERY 1 DAYS
     Route: 061
  2. IRBESARTAN [Concomitant]
     Active Substance: IRBESARTAN
     Route: 065
  3. ROSUVASTATIN [Concomitant]
     Active Substance: ROSUVASTATIN
     Route: 065
  4. ADALAT XL - SRT [Concomitant]
     Route: 065
  5. SYNTHROID [Concomitant]
     Active Substance: LEVOTHYROXINE SODIUM
     Route: 065

REACTIONS (1)
  - Vision blurred [Unknown]
